FAERS Safety Report 24299581 (Version 1)
Quarter: 2024Q3

REPORT INFORMATION
  Report Type: Spontaneous
  Country: CA (occurrence: TT)
  Receive Date: 20240909
  Receipt Date: 20240909
  Transmission Date: 20241017
  Serious: Yes (Other)
  Sender: FERRING
  Company Number: CA-FERRINGPH-2024FE03662

PATIENT

DRUGS (3)
  1. DESMOPRESSIN ACETATE [Suspect]
     Active Substance: DESMOPRESSIN ACETATE
     Indication: Nocturia
     Dosage: 120 UG, EVERY OTHER DAY
     Route: 065
     Dates: start: 20240621, end: 20240626
  2. DESMOPRESSIN ACETATE [Suspect]
     Active Substance: DESMOPRESSIN ACETATE
     Dosage: 60 UG, 1 TIME DAILY
     Route: 065
     Dates: start: 20240628, end: 20240628
  3. DESMOPRESSIN ACETATE [Suspect]
     Active Substance: DESMOPRESSIN ACETATE
     Dosage: 60 UG, 1 TIME DAILY
     Route: 065
     Dates: start: 20240630

REACTIONS (8)
  - Fall [Unknown]
  - Hypotension [Unknown]
  - Hyponatraemia [Unknown]
  - Sleep disorder [Not Recovered/Not Resolved]
  - Wrong technique in product usage process [Not Recovered/Not Resolved]
  - Product use in unapproved indication [Not Recovered/Not Resolved]
  - Contraindicated product administered [Not Recovered/Not Resolved]
  - Labelled drug-disease interaction medication error [Not Recovered/Not Resolved]

NARRATIVE: CASE EVENT DATE: 20240621
